FAERS Safety Report 24746442 (Version 1)
Quarter: 2024Q4

REPORT INFORMATION
  Report Type: Spontaneous
  Country: US (occurrence: US)
  Receive Date: 20241218
  Receipt Date: 20241218
  Transmission Date: 20250115
  Serious: No
  Sender: ALEXION PHARMACEUTICALS
  Company Number: US-AstraZeneca-CH-00744413AP

PATIENT

DRUGS (2)
  1. BYDUREON BCISE [Suspect]
     Active Substance: EXENATIDE
  2. BYDUREON BCISE [Suspect]
     Active Substance: EXENATIDE

REACTIONS (9)
  - Device delivery system issue [Unknown]
  - Medication error [Unknown]
  - Device defective [Unknown]
  - Frustration tolerance decreased [Unknown]
  - Frustration tolerance decreased [Unknown]
  - Blood glucose increased [Unknown]
  - Injection site cyst [Unknown]
  - Intentional product use issue [Unknown]
  - Device issue [Unknown]
